FAERS Safety Report 6551958-6 (Version None)
Quarter: 2010Q1

REPORT INFORMATION
  Report Type: 
  Country: None (occurrence: None)
  Receive Date: 20100126
  Receipt Date: 20100115
  Transmission Date: 20100710
  Serious: Yes (Other)
  Sender: FDA-Public Use
  Company Number: US-BAYER-201011610NA

PATIENT
  Age: 31 Year
  Sex: Female

DRUGS (1)
  1. MIRENA [Suspect]
     Indication: DRUG USE FOR UNKNOWN INDICATION
     Dosage: UNABLE TO INSERT
     Route: 015

REACTIONS (4)
  - COMPLICATION OF DEVICE INSERTION [None]
  - HEART RATE INCREASED [None]
  - PROCEDURAL PAIN [None]
  - SYNCOPE [None]
